FAERS Safety Report 5263093-8 (Version None)
Quarter: 2007Q1

REPORT INFORMATION
  Report Type: 
  Country: None (occurrence: None)
  Receive Date: 20061219
  Receipt Date: 20061116
  Transmission Date: 20070707
  Serious: No
  Sender: FDA-Public Use
  Company Number: 2006US002693

PATIENT
  Age: 62 Year
  Sex: Female

DRUGS (1)
  1. VESICARE [Suspect]
     Indication: DRUG USE FOR UNKNOWN INDICATION
     Dosage: 10 MG, ORAL
     Route: 048
     Dates: start: 20060101

REACTIONS (3)
  - DRY MOUTH [None]
  - DYSPEPSIA [None]
  - URINARY RETENTION [None]
